FAERS Safety Report 6860837-6 (Version None)
Quarter: 2010Q3

REPORT INFORMATION
  Report Type: 
  Country: None (occurrence: None)
  Receive Date: 20100715
  Receipt Date: 20100708
  Transmission Date: 20110219
  Serious: Yes (Other)
  Sender: FDA-Public Use
  Company Number: RB-12668-2010

PATIENT
  Sex: Female

DRUGS (2)
  1. SUBOXONE [Suspect]
     Indication: DRUG DEPENDENCE
     Dosage: (8 MG TID SUBLINUAL)
     Route: 060
     Dates: start: 20050101, end: 20090101
  2. SUBUTEX [Suspect]
     Indication: DRUG DEPENDENCE
     Dosage: (8 MG TID SUBLINGUAL)
     Route: 060
     Dates: start: 20090101

REACTIONS (4)
  - CAESAREAN SECTION [None]
  - DRUG EXPOSURE DURING PREGNANCY [None]
  - OEDEMA PERIPHERAL [None]
  - PREMATURE SEPARATION OF PLACENTA [None]
